FAERS Safety Report 13108864 (Version 1)
Quarter: 2017Q1

REPORT INFORMATION
  Report Type: Spontaneous
  Country: US (occurrence: US)
  Receive Date: 20170112
  Receipt Date: 20170112
  Transmission Date: 20170428
  Serious: No
  Sender: FDA-Public Use
  Company Number: US-HORIZON-ACT-0006-2017

PATIENT
  Age: 4 Month

DRUGS (1)
  1. ACTIMMUNE [Suspect]
     Active Substance: INTERFERON GAMMA-1B
     Indication: CHRONIC GRANULOMATOUS DISEASE
     Dosage: HALF OF THE DOSE RECOMMENDED

REACTIONS (3)
  - Off label use [Unknown]
  - Pyrexia [Unknown]
  - Genital rash [Unknown]
